FAERS Safety Report 4819366-3 (Version None)
Quarter: 2005Q4

REPORT INFORMATION
  Report Type: 
  Country: None (occurrence: None)
  Receive Date: 20051031
  Receipt Date: 20050808
  Transmission Date: 20060501
  Serious: No
  Sender: FDA-Public Use
  Company Number: 2005PV000924

PATIENT
  Age: 64 Year
  Sex: Male
  Weight: 133.8111 kg

DRUGS (13)
  1. SYMLIN [Suspect]
     Indication: DIABETES MELLITUS
     Dosage: 60 MCG;SC; 96 MCG; SC; 120 MCG; SC
     Route: 058
     Dates: end: 20050801
  2. SYMLIN [Suspect]
     Indication: DIABETES MELLITUS
     Dosage: 60 MCG;SC; 96 MCG; SC; 120 MCG; SC
     Route: 058
     Dates: start: 20050627
  3. SYMLIN [Suspect]
     Indication: DIABETES MELLITUS
     Dosage: 60 MCG;SC; 96 MCG; SC; 120 MCG; SC
     Route: 058
     Dates: start: 20050801
  4. HUMALOG [Concomitant]
  5. LANTUS [Concomitant]
  6. GLUCOPHAGE [Concomitant]
  7. PAXIL [Concomitant]
  8. ACCUPRIL [Concomitant]
  9. LIPITOR [Concomitant]
  10. TOPROL-XL [Concomitant]
  11. WARFARIN SODIUM [Concomitant]
  12. LASIX [Concomitant]
  13. POTASSIUM [Concomitant]

REACTIONS (3)
  - INTENTIONAL DRUG MISUSE [None]
  - THERAPEUTIC RESPONSE UNEXPECTED [None]
  - WEIGHT DECREASED [None]
